FAERS Safety Report 14274730 (Version 1)
Quarter: 2017Q4

REPORT INFORMATION
  Report Type: Spontaneous
  Country: US (occurrence: US)
  Receive Date: 20171212
  Receipt Date: 20171212
  Transmission Date: 20180321
  Serious: No
  Sender: FDA-Public Use
  Company Number: US-ASTRAZENECA-2017SF19248

PATIENT
  Age: 722 Month
  Sex: Female

DRUGS (3)
  1. NEBULIZER IPRATROPIUM BROMIDE WITH ALBUTEROL SULFATE SOLUTION [Concomitant]
     Indication: CHRONIC OBSTRUCTIVE PULMONARY DISEASE
     Dosage: 0.5 MG/3MG PER 3 ML, AS REQUIRED
     Route: 055
     Dates: start: 201709
  2. SYMBICORT [Suspect]
     Active Substance: BUDESONIDE\FORMOTEROL FUMARATE DIHYDRATE
     Indication: CHRONIC OBSTRUCTIVE PULMONARY DISEASE
     Dosage: 160/4.5 MICROGRAMS 1 PUFF TWICE A DAY
     Route: 055
     Dates: start: 201711, end: 20171119
  3. NEBULIZER IPRATROPIUM BROMIDE WITH ALBUTEROL SULFATE SOLUTION [Concomitant]
     Indication: PULMONARY FIBROSIS
     Dosage: 0.5 MG/3MG PER 3 ML, AS REQUIRED
     Route: 055
     Dates: start: 201709

REACTIONS (2)
  - Tongue blistering [Not Recovered/Not Resolved]
  - Off label use [Unknown]

NARRATIVE: CASE EVENT DATE: 201711
